FAERS Safety Report 8808530 (Version 1)
Quarter: 2012Q4

REPORT INFORMATION
  Report Type: Spontaneous
  Country: US (occurrence: None)
  Receive Date: 20120919
  Receipt Date: 20120919
  Transmission Date: 20130627
  Serious: Yes (Death, Hospitalization, Other)
  Sender: FDA-Public Use
  Company Number: 2012MA010950

PATIENT
  Age: 27 Year
  Sex: Male

DRUGS (2)
  1. OXYMORPHONE HYDROCHLORIDE [Suspect]
     Indication: DRUG OVERDOSE
  2. COCAINE [Suspect]

REACTIONS (14)
  - Brain oedema [None]
  - Coma scale abnormal [None]
  - Basal ganglia haemorrhage [None]
  - Drug abuse [None]
  - Pulseless electrical activity [None]
  - Necrosis [None]
  - Cardiac arrest [None]
  - Troponin increased [None]
  - Blood creatine phosphokinase increased [None]
  - Ejection fraction decreased [None]
  - Electrocardiogram ST segment depression [None]
  - Electrocardiogram ST segment elevation [None]
  - Ventricular hypokinesia [None]
  - Blood creatine phosphokinase MB increased [None]
